FAERS Safety Report 8746153 (Version 2)
Quarter: 2012Q4

REPORT INFORMATION
  Report Type: 
  Country: US (occurrence: US)
  Receive Date: 20120827
  Receipt Date: 20120831
  Transmission Date: 20130627
  Serious: Yes (Death, Other)
  Sender: FDA-Public Use
  Company Number: US-009507513-1208USA008238

PATIENT

DRUGS (1)
  1. SAPHRIS [Suspect]

REACTIONS (1)
  - Myocardial infarction [Fatal]
